FAERS Safety Report 6398966-6 (Version None)
Quarter: 2009Q4

REPORT INFORMATION
  Report Type: 
  Country: None (occurrence: None)
  Receive Date: 20091013
  Receipt Date: 20090916
  Transmission Date: 20100525
  Serious: No
  Sender: FDA-Public Use
  Company Number: US-BAYER-200914633BCC

PATIENT
  Age: 58 Year
  Sex: Female
  Weight: 145 kg

DRUGS (8)
  1. ALEVE [Suspect]
     Indication: ARTHRALGIA
     Dosage: TOTAL DAILY DOSE: 880 MG  UNIT DOSE: 220 MG
     Route: 048
     Dates: start: 20090914
  2. DEPAKOTE [Concomitant]
     Route: 065
  3. HALDOL [Concomitant]
     Route: 065
  4. IRON [Concomitant]
     Route: 065
  5. MULTI-VITAMIN [Concomitant]
     Route: 065
  6. COGENTIN [Concomitant]
     Route: 065
  7. DETROL [Concomitant]
     Route: 065
  8. SEROQUEL [Concomitant]
     Route: 065

REACTIONS (1)
  - ABDOMINAL PAIN [None]
